FAERS Safety Report 15604085 (Version 1)
Quarter: 2018Q4

REPORT INFORMATION
  Report Type: Spontaneous
  Country: US (occurrence: US)
  Receive Date: 20181109
  Receipt Date: 20181109
  Transmission Date: 20190205
  Serious: No
  Sender: FDA-Public Use
  Company Number: US-GLENMARK PHARMACEUTICALS-2018GMK037337

PATIENT

DRUGS (1)
  1. ALCLOMETASONE DIPROPIONATE. [Suspect]
     Active Substance: ALCLOMETASONE DIPROPIONATE
     Indication: SEBORRHOEIC DERMATITIS
     Dosage: TWICE DAILY FOR A WEEK
     Route: 061
     Dates: start: 201808, end: 20180904

REACTIONS (3)
  - Seborrhoeic dermatitis [Not Recovered/Not Resolved]
  - Condition aggravated [Not Recovered/Not Resolved]
  - Drug ineffective [Unknown]
